FAERS Safety Report 5218975-X (Version None)
Quarter: 2007Q1

REPORT INFORMATION
  Report Type: 
  Country: None (occurrence: None)
  Receive Date: 20070125
  Receipt Date: 20070115
  Transmission Date: 20070707
  Serious: Yes (Hospitalization, Other)
  Sender: FDA-Public Use
  Company Number: PHHO2007JP01471

PATIENT
  Age: 73 Year
  Sex: Female
  Weight: 65 kg

DRUGS (9)
  1. DIOVAN [Suspect]
     Indication: HYPERTENSION
     Dosage: 80 MG/DAILY
     Route: 048
     Dates: start: 20021101
  2. ASPIRIN [Concomitant]
  3. ATELEC [Concomitant]
  4. NORVASC [Concomitant]
  5. NATEGLINIDE [Concomitant]
  6. AMARYL [Concomitant]
  7. HEPARINOID [Concomitant]
  8. FELDENE [Concomitant]
  9. EURAX [Concomitant]

REACTIONS (4)
  - BREAST CANCER [None]
  - BREAST MASS [None]
  - LYMPHADENECTOMY [None]
  - MASTECTOMY [None]
